FAERS Safety Report 5757250-1 (Version None)
Quarter: 2008Q2

REPORT INFORMATION
  Report Type: 
  Country: None (occurrence: None)
  Receive Date: 20080528
  Receipt Date: 20080509
  Transmission Date: 20081010
  Serious: Yes (Hospitalization)
  Sender: FDA-Public Use
  Company Number: 2008AL004524

PATIENT
  Age: 77 Year
  Sex: Male
  Weight: 78.9259 kg

DRUGS (5)
  1. DIGOXIN [Suspect]
     Indication: CARDIAC DISORDER
     Dosage: 0.125 DAILY PO
     Route: 048
  2. LIPITOR [Concomitant]
  3. PRASCOR [Concomitant]
  4. COUMADIN [Concomitant]
  5. LASIX [Concomitant]

REACTIONS (7)
  - DIZZINESS [None]
  - DYSGEUSIA [None]
  - MALAISE [None]
  - NAUSEA [None]
  - UNEVALUABLE EVENT [None]
  - VOMITING [None]
  - WEIGHT DECREASED [None]
